FAERS Safety Report 23311154 (Version 1)
Quarter: 2023Q4

REPORT INFORMATION
  Report Type: Spontaneous
  Country: US (occurrence: US)
  Receive Date: 20231218
  Receipt Date: 20231218
  Transmission Date: 20240110
  Serious: No
  Sender: FDA-Public Use
  Company Number: US-Vifor (International) Inc.-VIT-2023-09761

PATIENT
  Age: 86 Year
  Sex: Male

DRUGS (4)
  1. VELTASSA [Suspect]
     Active Substance: PATIROMER
     Indication: Hyperkalaemia
     Dosage: 1 PACKET DISSOLVED IN WATER AND TAKE ONCE A DAY AS DIRECTED. TAKE OTHER MEDICATIONS AT LEAST 3 HOURS
     Route: 048
     Dates: start: 20201020
  2. ARANESP [Concomitant]
     Active Substance: DARBEPOETIN ALFA
  3. ELIQUIS [Concomitant]
     Active Substance: APIXABAN
  4. FLAXSEED [Concomitant]
     Active Substance: FLAX SEED

REACTIONS (1)
  - Dialysis [Unknown]
